FAERS Safety Report 6274835-7 (Version None)
Quarter: 2009Q3

REPORT INFORMATION
  Report Type: 
  Country: None (occurrence: None)
  Receive Date: 20090721
  Receipt Date: 20090716
  Transmission Date: 20100115
  Serious: Yes (Death, Hospitalization)
  Sender: FDA-Public Use
  Company Number: US-BRISTOL-MYERS SQUIBB COMPANY-14685861

PATIENT
  Age: 51 Year
  Sex: Male
  Weight: 107 kg

DRUGS (3)
  1. SPRYCEL [Suspect]
     Indication: CHRONIC MYELOID LEUKAEMIA
  2. LORAZEPAM [Concomitant]
  3. LASIX [Concomitant]

REACTIONS (4)
  - ASCITES [None]
  - DEATH [None]
  - PERICARDIAL EFFUSION [None]
  - PLEURAL EFFUSION [None]
